FAERS Safety Report 4574211-9 (Version None)
Quarter: 2005Q1

REPORT INFORMATION
  Report Type: 
  Country: None (occurrence: None)
  Receive Date: 20050204
  Receipt Date: 20050122
  Transmission Date: 20050727
  Serious: Yes (Other)
  Sender: FDA-Public Use
  Company Number: 2005018085

PATIENT
  Age: 35 Year
  Sex: Male
  Weight: 96.1626 kg

DRUGS (2)
  1. ZOLOFT [Suspect]
     Indication: POST-TRAUMATIC STRESS DISORDER
     Dosage: ORAL
     Route: 048
     Dates: start: 20041221, end: 20041201
  2. DILANTIN [Suspect]
     Indication: CONVULSION

REACTIONS (13)
  - DISEASE RECURRENCE [None]
  - FALL [None]
  - FATIGUE [None]
  - FEELING ABNORMAL [None]
  - GRAND MAL CONVULSION [None]
  - HYPERHIDROSIS [None]
  - LOSS OF CONSCIOUSNESS [None]
  - MUSCLE TWITCHING [None]
  - NAUSEA [None]
  - PARALYSIS [None]
  - PETIT MAL EPILEPSY [None]
  - SOMNOLENCE [None]
  - SPEECH DISORDER [None]
